FAERS Safety Report 9476876 (Version 1)
Quarter: 2013Q3

REPORT INFORMATION
  Report Type: Spontaneous
  Country: US (occurrence: US)
  Receive Date: 20130826
  Receipt Date: 20130826
  Transmission Date: 20140515
  Serious: Yes (Other)
  Sender: FDA-Public Use
  Company Number: US-BRISTOL-MYERS SQUIBB COMPANY-19187582

PATIENT
  Age: 64 Year
  Sex: Female
  Weight: 52.61 kg

DRUGS (3)
  1. BARACLUDE TABS 0.5 MG [Suspect]
  2. AMIODARONE [Concomitant]
  3. ACYCLOVIR [Concomitant]

REACTIONS (5)
  - White blood cell count decreased [Unknown]
  - Hypoaesthesia [Unknown]
  - Balance disorder [Unknown]
  - Nervousness [Unknown]
  - Asthenia [Unknown]
